FAERS Safety Report 13717463 (Version 1)
Quarter: 2017Q3

REPORT INFORMATION
  Report Type: Spontaneous
  Country: US (occurrence: US)
  Receive Date: 20170705
  Receipt Date: 20170705
  Transmission Date: 20171127
  Serious: No
  Sender: FDA-Public Use
  Company Number: None

PATIENT
  Age: 56 Year
  Sex: Female
  Weight: 62.14 kg

DRUGS (1)
  1. DICLOFENAC [Suspect]
     Active Substance: DICLOFENAC
     Indication: SLEEP DISORDER
     Dosage: FREQUENCY - AT NIGHT - IT HELPS ME SLEEP
     Route: 048
     Dates: start: 20161116, end: 20170419

REACTIONS (2)
  - Drug ineffective [None]
  - Product formulation issue [None]
